FAERS Safety Report 11296466 (Version 2)
Quarter: 2015Q3

REPORT INFORMATION
  Report Type: Spontaneous
  Country: US (occurrence: US)
  Receive Date: 20150722
  Receipt Date: 20150831
  Transmission Date: 20151125
  Serious: No
  Sender: FDA-Public Use
  Company Number: US-ELI_LILLY_AND_COMPANY-US200911002903

PATIENT
  Age: 60 Year
  Sex: Female

DRUGS (26)
  1. ASPIRIN. [Concomitant]
     Active Substance: ASPIRIN
  2. PLAVIX [Concomitant]
     Active Substance: CLOPIDOGREL BISULFATE
     Dosage: UNK, UNK
     Dates: start: 20091124
  3. CRESTOR [Concomitant]
     Active Substance: ROSUVASTATIN CALCIUM
  4. PROGESTERONE. [Concomitant]
     Active Substance: PROGESTERONE
  5. VITAMIN D [Concomitant]
     Active Substance: CHOLECALCIFEROL
  6. CYMBALTA [Suspect]
     Active Substance: DULOXETINE HYDROCHLORIDE
     Dosage: UNK, UNKNOWN
     Route: 065
     Dates: end: 20091012
  7. CYMBALTA [Suspect]
     Active Substance: DULOXETINE HYDROCHLORIDE
     Dosage: UNK, UNKNOWN
     Route: 065
     Dates: start: 20091030, end: 20091103
  8. CYMBALTA [Suspect]
     Active Substance: DULOXETINE HYDROCHLORIDE
     Dosage: UNK, UNKNOWN
     Route: 065
     Dates: start: 20091127
  9. THYROID [Concomitant]
     Active Substance: LEVOTHYROXINE\LIOTHYRONINE
  10. ATROVENT [Concomitant]
     Active Substance: IPRATROPIUM BROMIDE
  11. CALCIUM [Concomitant]
     Active Substance: CALCIUM
  12. FLAXSEED [Concomitant]
     Active Substance: FLAX SEED
  13. GLUCOSAMINE [Concomitant]
     Active Substance: GLUCOSAMINE
  14. PRILOSEC [Concomitant]
     Active Substance: OMEPRAZOLE MAGNESIUM
  15. LORATADINE. [Concomitant]
     Active Substance: LORATADINE
  16. ESTER-C [Concomitant]
     Active Substance: CALCIUM\VITAMINS
  17. XANAX [Concomitant]
     Active Substance: ALPRAZOLAM
  18. SIMVASTATIN. [Concomitant]
     Active Substance: SIMVASTATIN
  19. HERBAL NOS [Concomitant]
     Active Substance: HERBALS
  20. EFFIENT [Suspect]
     Active Substance: PRASUGREL HYDROCHLORIDE
     Indication: STENT PLACEMENT
     Dosage: 10 MG, DAILY (1/D)
     Dates: start: 20091023, end: 2009
  21. PLAVIX [Concomitant]
     Active Substance: CLOPIDOGREL BISULFATE
     Indication: STENT PLACEMENT
     Dosage: 75 MG, DAILY (1/D)
     Dates: start: 20091008, end: 20091022
  22. BYSTOLIC [Concomitant]
     Active Substance: NEBIVOLOL HYDROCHLORIDE
     Dates: start: 20091218
  23. PATANOL [Concomitant]
     Active Substance: OLOPATADINE HYDROCHLORIDE
  24. CENOVIS MEGA-MULTI [Concomitant]
  25. FISH OIL [Concomitant]
     Active Substance: FISH OIL
  26. EVENING PRIMROSE OIL [Concomitant]
     Active Substance: EVENING PRIMROSE OIL

REACTIONS (3)
  - Petechiae [Not Recovered/Not Resolved]
  - Rectal haemorrhage [Unknown]
  - Epistaxis [Unknown]

NARRATIVE: CASE EVENT DATE: 2009
